FAERS Safety Report 6541837 (Version 4)
Quarter: 2020Q3

REPORT INFORMATION
  Report Type: Spontaneous
  Country: GB (occurrence: GB)
  Receive Date: 20080201
  Receipt Date: 20080314
  Transmission Date: 20201105
  Serious: Yes (Other)
  Sender: FDA-Public Use
  Company Number: GB-PFIZER INC-2008008107

PATIENT
  Age: 51 Year
  Sex: Female

DRUGS (11)
  1. FLUOROURACIL. [Interacting]
     Active Substance: FLUOROURACIL
     Indication: BREAST CANCER
  2. CYCLOPHOSPHAMIDE. [Interacting]
     Active Substance: CYCLOPHOSPHAMIDE
     Indication: BREAST CANCER
  3. IBANDRONIC ACID. [Interacting]
     Active Substance: IBANDRONIC ACID
     Indication: METASTASIS
     Route: 048
  4. UNSPECIFIED INGREDIENT [Concomitant]
     Active Substance: UNSPECIFIED INGREDIENT
  5. ANASTROZOLE. [Interacting]
     Active Substance: ANASTROZOLE
     Indication: BREAST CANCER
  6. EXEMESTANE. [Suspect]
     Active Substance: EXEMESTANE
     Indication: BREAST CANCER
  7. TAMOXIFEN [Interacting]
     Active Substance: TAMOXIFEN
     Indication: BREAST CANCER
  8. METHOTREXATE. [Interacting]
     Active Substance: METHOTREXATE
     Indication: BREAST CANCER
  9. ZOLEDRONATE [Interacting]
     Active Substance: ZOLEDRONIC ACID
     Indication: METASTASIS
     Route: 042
  10. PAMIDRONATE DISODIUM. [Interacting]
     Active Substance: PAMIDRONATE DISODIUM
     Dosage: FREQ:MONTHLY
     Route: 042
  11. CLODRONIC ACID [Interacting]
     Active Substance: CLODRONIC ACID
     Indication: METASTASIS

REACTIONS (2)
  - Drug interaction [Not Recovered/Not Resolved]
  - Osteonecrosis [Not Recovered/Not Resolved]
